FAERS Safety Report 5609225-0 (Version None)
Quarter: 2008Q1

REPORT INFORMATION
  Report Type: 
  Country: None (occurrence: None)
  Receive Date: 20080129
  Receipt Date: 20080129
  Transmission Date: 20080703
  Serious: No
  Sender: FDA-Public Use
  Company Number: None

PATIENT
  Sex: Female

DRUGS (1)
  1. LAMICTAL [Suspect]
     Dosage: 25 MG, BID; PO
     Route: 048
     Dates: start: 20071228

REACTIONS (2)
  - MEMORY IMPAIRMENT [None]
  - SPEECH DISORDER [None]
